FAERS Safety Report 12477677 (Version 1)
Quarter: 2016Q2

REPORT INFORMATION
  Report Type: Spontaneous
  Country: US (occurrence: US)
  Receive Date: 20160617
  Receipt Date: 20160617
  Transmission Date: 20160815
  Serious: No
  Sender: FDA-Public Use
  Company Number: US-ALLERGAN-1654794US

PATIENT
  Age: 31 Year
  Sex: Male

DRUGS (1)
  1. VIBERZI [Suspect]
     Active Substance: ELUXADOLINE
     Indication: PRODUCT USED FOR UNKNOWN INDICATION
     Dosage: 75 MG, BID

REACTIONS (3)
  - Aspartate aminotransferase increased [Unknown]
  - Abdominal pain upper [Recovered/Resolved]
  - Alanine aminotransferase increased [Unknown]
